FAERS Safety Report 15472868 (Version 1)
Quarter: 2018Q4

REPORT INFORMATION
  Report Type: Spontaneous
  Country: US (occurrence: US)
  Receive Date: 20181008
  Receipt Date: 20181008
  Transmission Date: 20190205
  Serious: No
  Sender: FDA-Public Use
  Company Number: US-PFIZER INC-2018397633

PATIENT
  Age: 52 Year
  Sex: Male

DRUGS (1)
  1. SOMAVERT [Suspect]
     Active Substance: PEGVISOMANT
     Dosage: 10 MG, DAILY
     Dates: start: 20090203

REACTIONS (3)
  - Insulin-like growth factor increased [Unknown]
  - Blood alkaline phosphatase increased [Unknown]
  - Thyroxine free decreased [Unknown]
